FAERS Safety Report 17741182 (Version 1)
Quarter: 2020Q2

REPORT INFORMATION
  Report Type: Spontaneous
  Country: CN (occurrence: CN)
  Receive Date: 20200504
  Receipt Date: 20200504
  Transmission Date: 20200714
  Serious: Yes (Death, Other)
  Sender: FDA-Public Use
  Company Number: NVSC2020CN119451

PATIENT
  Age: 37 Year
  Sex: Female

DRUGS (3)
  1. PREDNISONE. [Suspect]
     Active Substance: PREDNISONE
     Indication: SJOGREN^S SYNDROME
     Dosage: 40 MG, QD
     Route: 065
  2. METHYLPREDNISOLONE. [Suspect]
     Active Substance: METHYLPREDNISOLONE
     Dosage: 200 MG, QD
     Route: 065
  3. METHYLPREDNISOLONE. [Suspect]
     Active Substance: METHYLPREDNISOLONE
     Indication: SJOGREN^S SYNDROME
     Dosage: 80 MG, QD (FOR 2 WEEKS)
     Route: 065

REACTIONS (3)
  - Product use in unapproved indication [Unknown]
  - Histoplasmosis disseminated [Fatal]
  - Respiratory failure [Fatal]
